FAERS Safety Report 23719732 (Version 1)
Quarter: 2024Q2

REPORT INFORMATION
  Report Type: Spontaneous
  Country: US (occurrence: None)
  Receive Date: 20240408
  Receipt Date: 20240408
  Transmission Date: 20240716
  Serious: Yes (Other)
  Sender: FDA-Public Use
  Company Number: None

PATIENT
  Age: 66 Year
  Sex: Female
  Weight: 89.8 kg

DRUGS (1)
  1. RITUXIMAB [Suspect]
     Active Substance: RITUXIMAB
     Route: 042
     Dates: start: 20240118, end: 20240209

REACTIONS (6)
  - Chills [None]
  - Flushing [None]
  - Dysphagia [None]
  - Oropharyngeal discomfort [None]
  - Nausea [None]
  - Body temperature increased [None]

NARRATIVE: CASE EVENT DATE: 20240118
